FAERS Safety Report 11920480 (Version 2)
Quarter: 2016Q1

REPORT INFORMATION
  Report Type: Spontaneous
  Country: IT (occurrence: IT)
  Receive Date: 20160115
  Receipt Date: 20160224
  Transmission Date: 20160526
  Serious: Yes (Death, Life-Threatening, Hospitalization, Other)
  Sender: FDA-Public Use
  Company Number: IT-ELI_LILLY_AND_COMPANY-IT201511005523

PATIENT
  Age: 75 Year
  Sex: Female
  Weight: 79 kg

DRUGS (8)
  1. CYMBALTA [Suspect]
     Active Substance: DULOXETINE HYDROCHLORIDE
     Indication: DEPRESSION
     Dosage: 30 MG, QD
     Route: 048
     Dates: start: 20151104, end: 20151111
  2. ASPIRIN                            /00002701/ [Suspect]
     Active Substance: ASPIRIN
     Indication: CARDIOMYOPATHY
     Dosage: 100 MG, UNK
     Route: 048
  3. MANIDIPINE [Concomitant]
     Active Substance: MANIDIPINE
     Indication: HYPERTENSION
     Dosage: 20 MG, UNK
     Route: 048
  4. FOSTAIR [Concomitant]
     Active Substance: BECLOMETHASONE\FORMOTEROL
     Indication: CHRONIC OBSTRUCTIVE PULMONARY DISEASE
     Dosage: 2 DF, UNK
     Route: 055
  5. MADOPAR [Concomitant]
     Active Substance: BENSERAZIDE HYDROCHLORIDE\LEVODOPA
     Indication: PARKINSON^S DISEASE
     Dosage: 1.5 DF, UNKNOWN
     Route: 048
     Dates: start: 20151104, end: 20151111
  6. ROSUVASTATIN CALCIUM. [Concomitant]
     Active Substance: ROSUVASTATIN CALCIUM
     Indication: DYSLIPIDAEMIA
     Dosage: 10 MG, UNK
     Route: 048
  7. BISOPROLOL HEMIFUMARATE [Concomitant]
     Active Substance: BISOPROLOL FUMARATE
     Indication: HYPERTENSION
     Dosage: 1.25 MG, UNK
     Route: 048
  8. LISINOPRIL + HIDROCLOROTIAZIDA [Concomitant]
     Active Substance: HYDROCHLOROTHIAZIDE\LISINOPRIL
     Indication: HYPERTENSION
     Dosage: 1 DF, UNK
     Route: 048

REACTIONS (24)
  - Ischaemic cardiomyopathy [Unknown]
  - Rib fracture [Unknown]
  - Contusion [Unknown]
  - Renal disorder [Unknown]
  - Small cell lung cancer [Unknown]
  - Intestinal obstruction [Unknown]
  - Seizure [Unknown]
  - Vertigo [Recovered/Resolved]
  - Pleural effusion [Unknown]
  - Coma [Unknown]
  - Multiple injuries [Unknown]
  - Death [Fatal]
  - Hyponatraemia [Recovered/Resolved]
  - Ecchymosis [Unknown]
  - Hiatus hernia [Unknown]
  - Acute respiratory failure [Unknown]
  - Haemothorax [Unknown]
  - Pulmonary contusion [Unknown]
  - Blood potassium decreased [Unknown]
  - Diverticulum intestinal [Unknown]
  - Blood chloride decreased [Unknown]
  - Fall [Unknown]
  - Dizziness [Unknown]
  - Delirium [Unknown]

NARRATIVE: CASE EVENT DATE: 20151111
